FAERS Safety Report 8504349 (Version 2)
Quarter: 2012Q4

REPORT INFORMATION
  Report Type: Report from Study
  Country: CA (occurrence: CA)
  Receive Date: 20120411
  Receipt Date: 20121126
  Transmission Date: 20130627
  Serious: Yes (Other)
  Sender: FDA-Public Use
  Company Number: CA-ROCHE-1053685

PATIENT
  Age: 70 None
  Sex: Male
  Weight: 89.89 kg

DRUGS (25)
  1. RITUXIMAB [Suspect]
     Indication: GRANULOMATOSIS WITH POLYANGIITIS
     Dosage: frequency: day 1 and 15
     Route: 042
     Dates: start: 20110713
  2. RITUXIMAB [Suspect]
     Indication: VASCULITIS
  3. PREDNISONE [Concomitant]
  4. RAMIPRIL [Concomitant]
  5. WARFARIN [Concomitant]
  6. METFORMIN [Concomitant]
     Indication: DIABETES MELLITUS
  7. FOLIC ACID [Concomitant]
  8. CYMBALTA [Concomitant]
  9. LYRICA [Concomitant]
  10. SYMBICORT [Concomitant]
  11. ACTONEL [Concomitant]
  12. APO-SULFATRIM [Concomitant]
  13. NEILMED SINUS RINSE [Concomitant]
  14. EVAMIST [Concomitant]
     Route: 045
  15. LORATADINE [Concomitant]
  16. NITRO PATCH [Concomitant]
     Indication: PRODUCT USED FOR UNKNOWN INDICATION
  17. METHYLPREDNISOLONE [Concomitant]
     Indication: PREMEDICATION
     Route: 042
     Dates: start: 20110726, end: 20110726
  18. METHYLPREDNISOLONE [Concomitant]
     Route: 042
     Dates: start: 20110713
  19. ACETAMINOPHEN [Concomitant]
     Indication: PREMEDICATION
     Route: 048
     Dates: start: 20110726, end: 20110726
  20. ACETAMINOPHEN [Concomitant]
     Route: 048
     Dates: start: 20110713
  21. DIPHENHYDRAMINE [Concomitant]
     Indication: PREMEDICATION
     Route: 048
     Dates: start: 20110726, end: 20110726
  22. DIPHENHYDRAMINE [Concomitant]
     Route: 048
     Dates: start: 20110713
  23. GLYBURIDE [Concomitant]
     Indication: DIABETES MELLITUS
  24. FUROSEMIDE [Concomitant]
  25. RANITIDINE [Concomitant]

REACTIONS (3)
  - Scar [Not Recovered/Not Resolved]
  - Respiratory disorder [Not Recovered/Not Resolved]
  - Malignant tumour excision [Unknown]
